FAERS Safety Report 9419683 (Version 1)
Quarter: 2013Q3

REPORT INFORMATION
  Report Type: Spontaneous
  Country: US (occurrence: None)
  Receive Date: 20130723
  Receipt Date: 20130723
  Transmission Date: 20140515
  Serious: Yes (Other)
  Sender: FDA-Public Use
  Company Number: 001566025A

PATIENT
  Age: 13 Year
  Sex: Male

DRUGS (1)
  1. XOUT WASH IN TREATMENT [Suspect]
     Indication: ACNE
     Dates: start: 20130613

REACTIONS (2)
  - Rash [None]
  - Hypoaesthesia oral [None]
